FAERS Safety Report 4452278-6 (Version None)
Quarter: 2004Q3

REPORT INFORMATION
  Report Type: 
  Country: None (occurrence: None)
  Receive Date: 20040917
  Receipt Date: 20030314
  Transmission Date: 20050211
  Serious: Yes (Hospitalization)
  Sender: FDA-Public Use
  Company Number: US-BRISTOL-MYERS SQUIBB COMPANY-12211249

PATIENT
  Age: 70 Year
  Sex: Male

DRUGS (10)
  1. CYCLOPHOSPHAMIDE [Suspect]
     Indication: CHRONIC LYMPHOCYTIC LEUKAEMIA
     Dosage: 3 DAYS OF TREATMENT PER CYCLE EVERY 28 DAYS; CYCLE 1: 28-JAN-02; CYCLE 4: 06-MAY-02
     Route: 042
     Dates: start: 20020325, end: 20020327
  2. FLUDARABINE PHOSPHATE [Suspect]
     Indication: CHRONIC LYMPHOCYTIC LEUKAEMIA
     Dosage: 3 DAYS OF TREATMENT PER CYCLE EVERY 28 DAYS; CYCLE 1: 28-JAN-02; CYCLE 4: 06-MAY-02
     Route: 042
     Dates: start: 20020325, end: 20020327
  3. DILTIAZEM HCL [Suspect]
  4. ACYCLOVIR [Concomitant]
  5. CO-TRIMOXAZOLE [Concomitant]
  6. ALLOPURINOL [Concomitant]
  7. ATORVASTATIN CALCIUM [Concomitant]
  8. ASPIRIN [Concomitant]
  9. CEFTAZIDIME [Concomitant]
  10. LEVOFLOXACIN [Concomitant]

REACTIONS (6)
  - BODY TEMPERATURE INCREASED [None]
  - HAEMATOCRIT DECREASED [None]
  - HAEMOGLOBIN DECREASED [None]
  - HYPOTENSION [None]
  - POST PROCEDURAL COMPLICATION [None]
  - RECTAL ABSCESS [None]
